FAERS Safety Report 6771550-8 (Version None)
Quarter: 2010Q2

REPORT INFORMATION
  Report Type: 
  Country: None (occurrence: None)
  Receive Date: 20100616
  Receipt Date: 20100607
  Transmission Date: 20101027
  Serious: Yes (Other)
  Sender: FDA-Public Use
  Company Number: US-ROCHE-708701

PATIENT

DRUGS (2)
  1. BEVACIZUMAB [Suspect]
     Dosage: REPORTED FORM: INFUSION. THE PATIENT WAS REMOVED FROM THE STUDY
     Route: 042
  2. AMG 102 [Suspect]
     Dosage: THE PATIENT WAS REMOVED FROM THE STUDY
     Route: 042

REACTIONS (1)
  - ELECTROCARDIOGRAM QT PROLONGED [None]
